FAERS Safety Report 23999058 (Version 1)
Quarter: 2024Q2

REPORT INFORMATION
  Report Type: Spontaneous
  Country: US (occurrence: US)
  Receive Date: 20240621
  Receipt Date: 20240621
  Transmission Date: 20240716
  Serious: No
  Sender: FDA-Public Use
  Company Number: US-PFIZER INC-202400197899

PATIENT
  Age: 78 Year
  Sex: Male

DRUGS (9)
  1. XELJANZ [Suspect]
     Active Substance: TOFACITINIB CITRATE
     Dosage: 5MG TABLETS (60/BTL) TAKE 1 TABLET BY MOUTH IN THE MORNING AND 1 TABLET BY MOUTH IN THE EVENING
     Route: 048
     Dates: start: 2021
  2. ENTRESTO [Concomitant]
     Active Substance: SACUBITRIL\VALSARTAN
     Dosage: 49MG-51MG TABLET
  3. JARDIANCE [Concomitant]
     Active Substance: EMPAGLIFLOZIN
     Dosage: 10 MG
  4. MINERALS\VITAMINS [Concomitant]
     Active Substance: MINERALS\VITAMINS
  5. CALCIUM [Concomitant]
     Active Substance: CALCIUM
  6. FISH OIL [Concomitant]
     Active Substance: FISH OIL
  7. D [Concomitant]
  8. LORATADINE [Concomitant]
     Active Substance: LORATADINE
  9. TYLENOL [Concomitant]
     Active Substance: ACETAMINOPHEN
     Dosage: 325 MG

REACTIONS (1)
  - Fall [Recovered/Resolved]
